FAERS Safety Report 9465831 (Version 2)
Quarter: 2013Q4

REPORT INFORMATION
  Report Type: Spontaneous
  Country: US (occurrence: US)
  Receive Date: 20130820
  Receipt Date: 20131009
  Transmission Date: 20140711
  Serious: No
  Sender: FDA-Public Use
  Company Number: US-PFIZER INC-2013238991

PATIENT
  Age: 22 Year
  Sex: Female
  Weight: 104.3 kg

DRUGS (3)
  1. ADVIL PM [Suspect]
     Indication: MUSCULOSKELETAL PAIN
     Dosage: 2 CAPLETS OF IBUPROFEN 200MG/ DIPHENHYDRAMINE CITRATE 38MG ONCE A DAY
     Route: 048
     Dates: start: 20130816, end: 20130816
  2. VITAMIN B12 [Concomitant]
     Dosage: UNK
  3. CENTRUM SILVER [Concomitant]
     Dosage: UNK

REACTIONS (1)
  - Drug ineffective [Unknown]
